FAERS Safety Report 4425762-9 (Version None)
Quarter: 2004Q3

REPORT INFORMATION
  Report Type: 
  Country: None (occurrence: None)
  Receive Date: 20040810
  Receipt Date: 20040729
  Transmission Date: 20050211
  Serious: Yes (Hospitalization)
  Sender: FDA-Public Use
  Company Number: STA-AE-04-MTX-337

PATIENT
  Age: 65 Year
  Sex: Female

DRUGS (15)
  1. METHOTREXATE [Suspect]
     Indication: RHEUMATOID ARTHRITIS
     Dosage: 20 MG 1X PER 1 WK, ORAL
     Route: 048
  2. ARAVA [Suspect]
     Indication: RHEUMATOID ARTHRITIS
     Dosage: 20 MG 1 X PER 1 DAY, ORAL
     Route: 048
  3. HYDROXYCHLOROQUINE SULFATE [Suspect]
     Indication: RHEUMATOID ARTHRITIS
     Dosage: 20 MG 1 X PER 1 DAY, ORAL
     Route: 048
  4. SULFASALAZINE [Suspect]
     Indication: RHEUMATOID ARTHRITIS
     Dosage: 1.5 G 2X PER 1 DAY, ORAL
     Route: 048
  5. MELOXICAM MELOXICAM) [Concomitant]
  6. OMEPRAZOLE [Concomitant]
  7. PIPERAZINE (PIPERAZINE) [Concomitant]
  8. TEMEAZEPAM (TEMEAZEPAM) [Concomitant]
  9. OXAZEPAM [Concomitant]
  10. SALMETEROL (SALMETEROL) [Concomitant]
  11. SALBUTAMOL (SALBUTAMAMOL) [Concomitant]
  12. DOXEPIN (DOXEPIN) [Concomitant]
  13. CYPROHEPTADINE HCL [Concomitant]
  14. HYDROCHLORIDE/HYDROCHLOROTHIAZIDE) [Concomitant]
  15. AMILORIDE HCL W/HYDROCHLOROTHIAZIDE [Concomitant]

REACTIONS (9)
  - BONE MARROW DEPRESSION [None]
  - CELLULITIS [None]
  - DIARRHOEA [None]
  - DRUG TOXICITY [None]
  - GASTROINTESTINAL DISORDER [None]
  - MOUTH ULCERATION [None]
  - PANCYTOPENIA [None]
  - SEPSIS [None]
  - THERAPEUTIC AGENT TOXICITY [None]
